FAERS Safety Report 14080006 (Version 2)
Quarter: 2018Q1

REPORT INFORMATION
  Report Type: Report from Study
  Country: US (occurrence: US)
  Receive Date: 20171012
  Receipt Date: 20180118
  Transmission Date: 20180508
  Serious: No
  Sender: FDA-Public Use
  Company Number: US-JNJFOC-20171011633

PATIENT
  Sex: Male
  Weight: 95.26 kg

DRUGS (1)
  1. USTEKINUMAB [Suspect]
     Active Substance: USTEKINUMAB
     Indication: PSORIASIS
     Route: 058
     Dates: start: 201008

REACTIONS (1)
  - Narcolepsy [Recovered/Resolved]

NARRATIVE: CASE EVENT DATE: 2012
